FAERS Safety Report 4332185-X (Version None)
Quarter: 2004Q1

REPORT INFORMATION
  Report Type: 
  Country: None (occurrence: None)
  Receive Date: 20040331
  Receipt Date: 20040315
  Transmission Date: 20041129
  Serious: Yes (Death)
  Sender: FDA-Public Use
  Company Number: JP_040302799

PATIENT
  Age: 46 Year
  Sex: Male

DRUGS (3)
  1. ONCOVIN [Suspect]
     Indication: RHABDOMYOSARCOMA
  2. CYCLOPHOSPHAMIDE [Concomitant]
  3. DACTINOMYCIN [Concomitant]

REACTIONS (5)
  - ELECTROCARDIOGRAM T WAVE INVERSION [None]
  - METASTASES TO HEART [None]
  - MYOCARDIAL INFARCTION [None]
  - SYNCOPE [None]
  - VENTRICULAR FIBRILLATION [None]
